FAERS Safety Report 7574096-2 (Version None)
Quarter: 2011Q2

REPORT INFORMATION
  Report Type: 
  Country: None (occurrence: None)
  Receive Date: 20110627
  Receipt Date: 20110617
  Transmission Date: 20111010
  Serious: Yes (Hospitalization)
  Sender: FDA-Public Use
  Company Number: US-ASTRAZENECA-2011SE36937

PATIENT
  Age: 60 Year
  Sex: Female
  Weight: 72.6 kg

DRUGS (3)
  1. HORMONAL THERAPY [Concomitant]
  2. SEROQUEL [Suspect]
     Indication: BIPOLAR DISORDER
     Route: 048
  3. LAMICTAL [Concomitant]

REACTIONS (3)
  - DEMENTIA [None]
  - STRESS [None]
  - OFF LABEL USE [None]
